FAERS Safety Report 4776948-5 (Version None)
Quarter: 2005Q3

REPORT INFORMATION
  Report Type: 
  Country: None (occurrence: None)
  Receive Date: 20050914
  Receipt Date: 20040729
  Transmission Date: 20060218
  Serious: Yes (Death)
  Sender: FDA-Public Use
  Company Number: 163-20785-04070647

PATIENT
  Age: 77 Year
  Sex: Male

DRUGS (2)
  1. THALOMID [Suspect]
     Indication: COLON CANCER METASTATIC
     Dosage: 100 MG, QD, P.O
     Route: 048
     Dates: start: 20030807, end: 20040101
  2. THALOMID [Suspect]
     Indication: METASTASES TO PROSTATE
     Dosage: 100 MG, QD, P.O
     Route: 048
     Dates: start: 20030807, end: 20040101

REACTIONS (2)
  - DEATH [None]
  - DISEASE PROGRESSION [None]
